FAERS Safety Report 14441272 (Version 1)
Quarter: 2018Q1

REPORT INFORMATION
  Report Type: Spontaneous
  Country: SI (occurrence: SI)
  Receive Date: 20180125
  Receipt Date: 20180125
  Transmission Date: 20180509
  Serious: Yes (Other)
  Sender: FDA-Public Use
  Company Number: SI-REGENERON PHARMACEUTICALS, INC.-2018-12060

PATIENT

DRUGS (4)
  1. EYLEA [Suspect]
     Active Substance: AFLIBERCEPT
     Indication: RETINAL VEIN OCCLUSION
     Dosage: UNK
     Dates: start: 20150421, end: 20150421
  2. EYLEA [Suspect]
     Active Substance: AFLIBERCEPT
     Indication: CYSTOID MACULAR OEDEMA
     Dosage: REGULAR APPLICATION OF AFLIBERCEPT
  3. EYLEA [Suspect]
     Active Substance: AFLIBERCEPT
     Dosage: UNK
     Dates: start: 20160119, end: 20160119
  4. EYLEA [Suspect]
     Active Substance: AFLIBERCEPT
     Dosage: UNK
     Dates: start: 20160321

REACTIONS (6)
  - Oral herpes [Unknown]
  - Visual acuity reduced [Unknown]
  - Nasopharyngitis [Unknown]
  - Visual acuity reduced [Unknown]
  - Visual acuity reduced [Unknown]
  - Unevaluable event [Unknown]

NARRATIVE: CASE EVENT DATE: 20151223
